FAERS Safety Report 8821858 (Version 4)
Quarter: 2013Q1

REPORT INFORMATION
  Report Type: Spontaneous
  Country: JP (occurrence: JP)
  Receive Date: 20121002
  Receipt Date: 20130226
  Transmission Date: 20140127
  Serious: Yes (Hospitalization)
  Sender: FDA-Public Use
  Company Number: JP-PFIZER INC-2012243109

PATIENT
  Age: 38 Year
  Sex: Female
  Weight: 50 kg

DRUGS (9)
  1. LYRICA [Suspect]
     Dosage: 450 MG, 1X/DAY
     Route: 048
  2. LYRICA [Suspect]
     Dosage: 150 MG
  3. GABAPEN [Suspect]
     Dosage: UNK, 1X/DAY
     Route: 048
  4. GABAPEN [Suspect]
     Dosage: 400 MG
  5. SEROQUEL [Suspect]
     Dosage: UNK, 1X/DAY
     Route: 048
  6. SEROQUEL [Suspect]
     Dosage: 500 MG
  7. TEGRETOL [Suspect]
     Dosage: UNK, 1X/DAY
     Route: 048
  8. TEGRETOL [Suspect]
     Dosage: 6400 MG
  9. DEPAS [Concomitant]
     Dosage: UNK
     Route: 048

REACTIONS (2)
  - Overdose [Recovered/Resolved]
  - Toxicity to various agents [Recovered/Resolved]
